FAERS Safety Report 25599510 (Version 1)
Quarter: 2025Q3

REPORT INFORMATION
  Report Type: Spontaneous
  Country: US (occurrence: US)
  Receive Date: 20250724
  Receipt Date: 20250724
  Transmission Date: 20251021
  Serious: Yes (Life-Threatening, Hospitalization, Other)
  Sender: UNICHEM
  Company Number: US-UNICHEM LABORATORIES LIMITED-UNI-2025-US-002798

PATIENT

DRUGS (1)
  1. AMLODIPINE [Suspect]
     Active Substance: AMLODIPINE BESYLATE
     Indication: Hypertension
     Route: 065

REACTIONS (11)
  - Pulseless electrical activity [Recovered/Resolved]
  - Cardiogenic shock [Recovered/Resolved]
  - Distributive shock [Recovered/Resolved]
  - Lactic acidosis [Unknown]
  - Metabolic acidosis [Unknown]
  - Intentional overdose [Unknown]
  - Compartment syndrome [Recovered/Resolved]
  - Pulmonary oedema [Unknown]
  - Acute kidney injury [Recovered/Resolved]
  - Rhabdomyolysis [Unknown]
  - Ischaemic hepatitis [Unknown]
